FAERS Safety Report 7085512-7 (Version None)
Quarter: 2010Q4

REPORT INFORMATION
  Report Type: 
  Country: None (occurrence: None)
  Receive Date: 20101105
  Receipt Date: 20101027
  Transmission Date: 20110411
  Serious: Yes (Other)
  Sender: FDA-Public Use
  Company Number: JP-ASTRAZENECA-2010SE51431

PATIENT
  Age: 53 Year
  Sex: Female

DRUGS (2)
  1. MARCAINE [Suspect]
     Indication: SPINAL ANAESTHESIA
     Route: 037
  2. CARBOCAIN [Suspect]
     Indication: EPIDURAL ANAESTHESIA
     Dosage: DOSE UNKNOWN
     Route: 008

REACTIONS (1)
  - RADICULOPATHY [None]
